FAERS Safety Report 5658932-2 (Version None)
Quarter: 2008Q1

REPORT INFORMATION
  Report Type: 
  Country: None (occurrence: None)
  Receive Date: 20080310
  Receipt Date: 20070508
  Transmission Date: 20080703
  Serious: No
  Sender: FDA-Public Use
  Company Number: US-BAYER-200711447BCC

PATIENT
  Age: 78 Year
  Sex: Female
  Weight: 93 kg

DRUGS (3)
  1. ALEVE [Suspect]
     Indication: INTERVERTEBRAL DISC PROTRUSION
     Dosage: TOTAL DAILY DOSE: 165 MG  UNIT DOSE: 220 MG
     Route: 048
     Dates: start: 20070508
  2. VERAPAMIL [Concomitant]
  3. ECOTRIN [Concomitant]

REACTIONS (1)
  - DIZZINESS [None]
